FAERS Safety Report 18289209 (Version 2)
Quarter: 2020Q4

REPORT INFORMATION
  Report Type: Spontaneous
  Country: US (occurrence: US)
  Receive Date: 20200921
  Receipt Date: 20201006
  Transmission Date: 20210113
  Serious: No
  Sender: FDA-Public Use
  Company Number: US-PFIZER INC-2020361608

PATIENT
  Age: 78 Year
  Sex: Female
  Weight: 80.74 kg

DRUGS (1)
  1. EFFEXOR XR [Suspect]
     Active Substance: VENLAFAXINE HYDROCHLORIDE
     Indication: DEPRESSION
     Dosage: 225 MG, 1X/DAY(75MG CAPSULES THREE EVERY NIGHT)
     Route: 048

REACTIONS (3)
  - Sedation [Unknown]
  - Aphonia [Unknown]
  - Body height decreased [Unknown]

NARRATIVE: CASE EVENT DATE: 20200917
